FAERS Safety Report 18666809 (Version 2)
Quarter: 2021Q1

REPORT INFORMATION
  Report Type: Spontaneous
  Country: US (occurrence: US)
  Receive Date: 20201227
  Receipt Date: 20210202
  Transmission Date: 20210419
  Serious: Yes (Other)
  Sender: FDA-Public Use
  Company Number: US-SUN PHARMACEUTICAL INDUSTRIES LTD-2020R1-272765

PATIENT
  Sex: Female

DRUGS (1)
  1. CEQUA [Suspect]
     Active Substance: CYCLOSPORINE
     Indication: PRODUCT USED FOR UNKNOWN INDICATION
     Dosage: UNK, EVERY 12 HRS
     Route: 047
     Dates: start: 2020

REACTIONS (4)
  - Supraventricular tachycardia [Recovering/Resolving]
  - Eye discharge [Unknown]
  - Instillation site pain [Unknown]
  - Dry eye [Unknown]

NARRATIVE: CASE EVENT DATE: 2020
